FAERS Safety Report 9017117 (Version 1)
Quarter: 2013Q1

REPORT INFORMATION
  Report Type: Spontaneous
  Country: US (occurrence: US)
  Receive Date: 20130117
  Receipt Date: 20130117
  Transmission Date: 20140127
  Serious: Yes (Hospitalization)
  Sender: FDA-Public Use
  Company Number: US-009507513-1301USA004206

PATIENT
  Age: 49 Year
  Sex: Male

DRUGS (5)
  1. ALBUTEROL SULFATE [Suspect]
  2. EZETIMIBE [Suspect]
  3. PLAVIX [Suspect]
     Indication: ANTIPLATELET THERAPY
     Dosage: 325 MG, QD
  4. LIPITOR [Suspect]
  5. ASPIRIN [Suspect]
     Indication: PSORIASIS
     Dosage: 81 MG, QD

REACTIONS (6)
  - Weight decreased [Unknown]
  - Myocardial infarction [Unknown]
  - Hypotension [Unknown]
  - Hypokinesia [Unknown]
  - Epistaxis [Unknown]
  - Coronary artery stenosis [Unknown]
